FAERS Safety Report 19801276 (Version 10)
Quarter: 2024Q2

REPORT INFORMATION
  Report Type: Report from Study
  Country: US (occurrence: US)
  Receive Date: 20210907
  Receipt Date: 20240620
  Transmission Date: 20240716
  Serious: Yes (Hospitalization, Other)
  Sender: FDA-Public Use
  Company Number: NVSC2021US198976

PATIENT
  Sex: Female

DRUGS (15)
  1. TAFINLAR [Suspect]
     Active Substance: DABRAFENIB MESYLATE
     Indication: Neoplasm malignant
     Dosage: 150 MG, Q12H
     Route: 048
     Dates: start: 20210812
  2. TAFINLAR [Suspect]
     Active Substance: DABRAFENIB MESYLATE
     Indication: Malignant melanoma
     Dosage: 75 MG, QD
     Route: 048
     Dates: start: 202108
  3. TAFINLAR [Suspect]
     Active Substance: DABRAFENIB MESYLATE
     Dosage: 150 MG, Q12H
     Route: 048
     Dates: start: 20210813
  4. TAFINLAR [Suspect]
     Active Substance: DABRAFENIB MESYLATE
     Dosage: 150 MG, BID
     Route: 048
     Dates: start: 20210817
  5. TAFINLAR [Suspect]
     Active Substance: DABRAFENIB MESYLATE
     Dosage: 150 MG, BID
     Route: 048
     Dates: start: 202108
  6. TAFINLAR [Suspect]
     Active Substance: DABRAFENIB MESYLATE
     Dosage: 75 MG, BID (2 CAPSULES)
     Route: 048
  7. TAFINLAR [Suspect]
     Active Substance: DABRAFENIB MESYLATE
     Dosage: 1 DOSAGE FORM, Q12H (ON AN EMPTY STOMACH 1 HOUR BEFORE OR 2 HOURS AFTER MEALS FOR 2 WEEKS ON AND 1 W
     Route: 048
  8. TAFINLAR [Suspect]
     Active Substance: DABRAFENIB MESYLATE
     Dosage: 75 MG, BID (TWICE DAILY FOR 4 DAYS ON + 3 DAYS OFF)
     Route: 048
     Dates: start: 202305
  9. MEKINIST [Suspect]
     Active Substance: TRAMETINIB DIMETHYL SULFOXIDE
     Indication: Neoplasm malignant
     Dosage: 2 MG, QD
     Route: 048
     Dates: start: 20210812
  10. MEKINIST [Suspect]
     Active Substance: TRAMETINIB DIMETHYL SULFOXIDE
     Indication: Malignant melanoma
     Dosage: 2 MG, QD
     Route: 048
     Dates: start: 20210817
  11. MEKINIST [Suspect]
     Active Substance: TRAMETINIB DIMETHYL SULFOXIDE
     Dosage: 2 MG, QD
     Route: 048
     Dates: start: 202108
  12. MEKINIST [Suspect]
     Active Substance: TRAMETINIB DIMETHYL SULFOXIDE
     Dosage: 2 MG, QD (1 TABLET)
     Route: 048
  13. MEKINIST [Suspect]
     Active Substance: TRAMETINIB DIMETHYL SULFOXIDE
     Dosage: 1 DOSAGE FORM, 3 DAYS PER WEEK (3 DAYS ON AND 4 DAYS OFF)
     Route: 048
     Dates: start: 202109
  14. MEKINIST [Suspect]
     Active Substance: TRAMETINIB DIMETHYL SULFOXIDE
     Dosage: 1 DOSAGE FORM, QD (1 HOUR BEFORE OR 2 HOURS AFTER MEALS FOR 2 WEEKS, ON 1 WEEK OFF)
     Route: 048
     Dates: start: 202109
  15. MEKINIST [Suspect]
     Active Substance: TRAMETINIB DIMETHYL SULFOXIDE
     Dosage: 0.5 MG, QD (TABLET BY MOUTH ONCE DAILY FOR 4 DAYS ON, THEN 3 DAYS OFF, THEN REPEAT)
     Route: 048
     Dates: start: 202302

REACTIONS (12)
  - Pyrexia [Unknown]
  - Malignant melanoma [Unknown]
  - Malignant neoplasm progression [Unknown]
  - Dry eye [Unknown]
  - General physical health deterioration [Unknown]
  - Pain in extremity [Recovering/Resolving]
  - Pain [Unknown]
  - Myalgia [Unknown]
  - Fatigue [Unknown]
  - Vision blurred [Unknown]
  - Visual impairment [Unknown]
  - Skin discolouration [Unknown]
